FAERS Safety Report 5940615-2 (Version None)
Quarter: 2008Q4

REPORT INFORMATION
  Report Type: 
  Country: None (occurrence: None)
  Receive Date: 20081103
  Receipt Date: 20081103
  Transmission Date: 20090506
  Serious: Yes (Life-Threatening, Hospitalization)
  Sender: FDA-Public Use
  Company Number: None

PATIENT
  Sex: Female
  Weight: 40.8237 kg

DRUGS (1)
  1. LEVAQUIN [Suspect]
     Indication: NASOPHARYNGITIS
     Dosage: 1 DAILY PO
     Route: 048
     Dates: start: 20081008, end: 20081009

REACTIONS (7)
  - ASTHENIA [None]
  - BLOOD PRESSURE INCREASED [None]
  - DYSPNOEA [None]
  - HEART RATE INCREASED [None]
  - INCORRECT DOSE ADMINISTERED [None]
  - MALAISE [None]
  - MUSCULOSKELETAL DISORDER [None]
